FAERS Safety Report 9275971 (Version 1)
Quarter: 2013Q2

REPORT INFORMATION
  Report Type: Spontaneous
  Country: US (occurrence: None)
  Receive Date: 20130502
  Receipt Date: 20130502
  Transmission Date: 20140414
  Serious: Yes (Other)
  Sender: FDA-Public Use
  Company Number: None

PATIENT
  Age: 53 Year
  Sex: Female
  Weight: 111 kg

DRUGS (1)
  1. DOXIL [Suspect]
     Indication: BREAST CANCER METASTATIC
     Dosage: Q28 DAYS
     Route: 042
     Dates: start: 20130214, end: 20130404

REACTIONS (3)
  - Off label use [None]
  - Palmar-plantar erythrodysaesthesia syndrome [None]
  - Rash [None]
